FAERS Safety Report 4628651-X (Version None)
Quarter: 2005Q2

REPORT INFORMATION
  Report Type: 
  Country: None (occurrence: None)
  Receive Date: 20050404
  Receipt Date: 20050323
  Transmission Date: 20051028
  Serious: Yes (Death, Life-Threatening, Hospitalization)
  Sender: FDA-Public Use
  Company Number: F01200500454

PATIENT
  Age: 62 Year
  Sex: Female

DRUGS (4)
  1. OXALIPLATIN [Suspect]
     Indication: COLORECTAL CANCER
     Dosage: 82 MG/M2 Q2W-INTRAVENOUS NOS
     Route: 042
     Dates: start: 20030428, end: 20030428
  2. FLUOROURACIL [Suspect]
     Dosage: 400 MG/M2 BLUS FOLLOWED BY 600 MG/M2 IV OVER 22 HOURS,  ON D1-D2 Q2W-INTRAVENOUS NOS
     Route: 042
  3. LEUCOVORIN CALCIUM [Suspect]
     Dosage: ... MG/M2 IV OVER 2 HOURS ON D-1D2, Q2W-INTRAVENOUS NOS
     Route: 042
  4. BEVACIZUMAB - SOLUTION - 10 MG/KG [Suspect]
     Dosage: 10 MG/KG Q2W- INTRVENOUS NOS
     Route: 042
     Dates: start: 20030224, end: 20030224

REACTIONS (9)
  - ARRHYTHMIA SUPRAVENTRICULAR [None]
  - ATRIAL FIBRILLATION [None]
  - CARDIAC FAILURE CONGESTIVE [None]
  - CARDIO-RESPIRATORY ARREST [None]
  - NERVOUS SYSTEM DISORDER [None]
  - NEUTROPENIA [None]
  - NEUTROPENIC INFECTION [None]
  - PNEUMONIA [None]
  - PROTEINURIA [None]
